FAERS Safety Report 24209388 (Version 1)
Quarter: 2024Q3

REPORT INFORMATION
  Report Type: Report from Study
  Country: PL (occurrence: PL)
  Receive Date: 20240814
  Receipt Date: 20240814
  Transmission Date: 20241017
  Serious: Yes (Other)
  Sender: RANBAXY
  Company Number: PL-SUN PHARMACEUTICAL INDUSTRIES LTD-2024R1-462216

PATIENT
  Sex: Female
  Weight: 11.2 kg

DRUGS (5)
  1. CISPLATIN [Suspect]
     Active Substance: CISPLATIN
     Indication: Chemotherapy
     Dosage: UNK
     Route: 065
  2. DOXORUBICIN [Suspect]
     Active Substance: DOXORUBICIN
     Indication: Chemotherapy
     Dosage: UNK
     Route: 065
  3. ETOPOSIDE [Suspect]
     Active Substance: ETOPOSIDE
     Indication: Chemotherapy
     Dosage: UNK
     Route: 065
  4. MITOTANE [Suspect]
     Active Substance: MITOTANE
     Indication: Chemotherapy
     Dosage: 750 MILLIGRAM, DAILY
     Route: 065
  5. MITOTANE [Suspect]
     Active Substance: MITOTANE
     Dosage: 3.5 GRAM, DAILY
     Route: 065

REACTIONS (5)
  - Disease progression [Unknown]
  - Precocious puberty [Unknown]
  - Tremor [Unknown]
  - Pain in extremity [Unknown]
  - Gait disturbance [Unknown]
